FAERS Safety Report 6336674-8 (Version None)
Quarter: 2009Q3

REPORT INFORMATION
  Report Type: 
  Country: None (occurrence: None)
  Receive Date: 20090901
  Receipt Date: 20090820
  Transmission Date: 20100115
  Serious: Yes (Life-Threatening, Hospitalization, Disabling)
  Sender: FDA-Public Use
  Company Number: FR-PFIZER INC-2009257285

PATIENT
  Age: 32 Year

DRUGS (5)
  1. ADRIBLASTINE [Suspect]
     Dosage: 50 MG, EVERY 2 WEEKS
     Route: 042
     Dates: start: 20080212, end: 20080928
  2. BLEOMYCIN SULFATE [Suspect]
     Dosage: 20 MG, EVERY 2 WEEKS
     Route: 042
     Dates: start: 20080212, end: 20080928
  3. VINBLASTINE ^ROGER BELLON^ [Concomitant]
     Dosage: 10 MG, EVERY 2 WEEKS
     Route: 042
     Dates: start: 20080212, end: 20080928
  4. DETICENE [Concomitant]
     Dosage: 720 MG, EVERY 2 WEEKS
     Route: 042
     Dates: start: 20080212, end: 20080928
  5. DEXAMETHASONE [Concomitant]
     Dosage: 20 MG, EVERY 2 WEEKS
     Route: 042
     Dates: start: 20080212, end: 20080928

REACTIONS (2)
  - PULMONARY FIBROSIS [None]
  - RESPIRATORY DISTRESS [None]
